APPROVED DRUG PRODUCT: METROCREAM
Active Ingredient: METRONIDAZOLE
Strength: 0.75%
Dosage Form/Route: CREAM;TOPICAL
Application: N020531 | Product #001 | TE Code: AB
Applicant: GALDERMA LABORATORIES LP
Approved: Sep 20, 1995 | RLD: Yes | RS: No | Type: RX